FAERS Safety Report 9051001 (Version 2)
Quarter: 2013Q1

REPORT INFORMATION
  Report Type: Spontaneous
  Country: IN (occurrence: IN)
  Receive Date: 20130121
  Receipt Date: 20130121
  Transmission Date: 20140127
  Serious: Yes (Death, Hospitalization)
  Sender: FDA-Public Use
  Company Number: IN-ABBOTT-13P-078-1034295-00

PATIENT
  Age: 65 Year
  Sex: Female
  Weight: 50 kg

DRUGS (2)
  1. EPTOIN [Suspect]
     Indication: SURGERY
     Dosage: 100MG TID
     Route: 048
     Dates: start: 20121203
  2. EPTOIN [Suspect]
     Indication: SUBDURAL HAEMATOMA

REACTIONS (5)
  - Stevens-Johnson syndrome [Fatal]
  - Dermatitis allergic [Fatal]
  - Pyrexia [Fatal]
  - Rash [Fatal]
  - Skin exfoliation [Fatal]
